FAERS Safety Report 8352819-2 (Version None)
Quarter: 2012Q2

REPORT INFORMATION
  Report Type: 
  Country: None (occurrence: None)
  Receive Date: 20120509
  Receipt Date: 20120503
  Transmission Date: 20120825
  Serious: Yes (Death, Hospitalization)
  Sender: FDA-Public Use
  Company Number: 2012083814

PATIENT
  Age: 66 Year
  Sex: Female

DRUGS (12)
  1. NOVALGIN (METAMIZOLE SODIUM) [Suspect]
     Indication: PYREXIA
     Dosage: 1 G, 1 PER 8 HOURS, IV BOLUS
     Route: 040
     Dates: start: 20120229, end: 20120303
  2. SPIRICORT (PREDNISOLONE) [Concomitant]
  3. AMOXICILLIN TRIHYDRATE [Suspect]
     Indication: BACTERIAL INFECTION
     Dosage: 2 G, 1 PER 4  HOURS, 1 G, 2/DAY, IV BOLUS
     Route: 040
     Dates: start: 20120305
  4. AMOXICILLIN TRIHYDRATE [Suspect]
     Indication: BACTERIAL INFECTION
     Dosage: 2 G, 1 PER 4  HOURS, 1 G, 2/DAY, IV BOLUS
     Route: 040
     Dates: start: 20120229, end: 20120304
  5. ZOVIRAX [Suspect]
     Indication: ENCEPHALITIS VIRAL
     Dosage: 750 MG, 1 PER 8 HOURS, IV BOLUS
     Route: 040
     Dates: start: 20120229, end: 20120304
  6. ESCITALOPRAM OXALATE [Concomitant]
  7. ESOMEPRAZOLE MAGNESIUM [Suspect]
     Dosage: 40 MG, 1XDAY, IV BOLUS
     Route: 040
     Dates: start: 20120229
  8. PANTOPRAZOLE SODIUM [Concomitant]
  9. LEUCOVORIN (FOLINIC ACID) [Concomitant]
  10. FRAGMIN [Suspect]
     Indication: THROMBOSIS PROPHYLAXIS
     Dosage: 5000 IU, 1X/DAY, SUBCUTANEOUS
     Route: 058
     Dates: start: 20120229, end: 20120304
  11. METHOTREXATE SODIUM [Suspect]
     Indication: PERIPHERAL T-CELL LYMPHOMA UNSPECIFIED
     Dosage: 5500 MG, DURING 4 HOURS, IV DRIP
     Route: 041
     Dates: start: 20120303, end: 20120303
  12. ROCEPHIN [Suspect]
     Indication: BACTERIAL INFECTION
     Dosage: 2 G, 1X/DAY, IV BOLUS
     Route: 040
     Dates: start: 20120229, end: 20120303

REACTIONS (11)
  - CLOSTRIDIUM DIFFICILE COLITIS [None]
  - BLOOD ALKALINE PHOSPHATASE INCREASED [None]
  - LIVER INJURY [None]
  - ALANINE AMINOTRANSFERASE INCREASED [None]
  - SEPSIS [None]
  - ASPARTATE AMINOTRANSFERASE INCREASED [None]
  - DRUG INTERACTION [None]
  - RENAL FAILURE ACUTE [None]
  - PANCYTOPENIA [None]
  - GAMMA-GLUTAMYLTRANSFERASE INCREASED [None]
  - ENTEROCOLITIS [None]
